FAERS Safety Report 4381925-2 (Version None)
Quarter: 2004Q2

REPORT INFORMATION
  Report Type: 
  Country: None (occurrence: None)
  Receive Date: 20040615
  Receipt Date: 20040607
  Transmission Date: 20050107
  Serious: Yes (Disabling)
  Sender: FDA-Public Use
  Company Number: 230002M04DNK

PATIENT
  Age: 32 Year
  Sex: Female
  Weight: 58 kg

DRUGS (3)
  1. REBIF [Suspect]
     Indication: MULTIPLE SCLEROSIS
     Dosage: 22 MCG, 3 IN 1 WEEKS,
     Dates: start: 19980501
  2. TIZANIDINE HYDROCHLORIDE [Concomitant]
  3. SERTRALINE HYDROCHLORIDE [Concomitant]

REACTIONS (2)
  - PERIODONTAL DISEASE [None]
  - TOOTH EXTRACTION [None]
